FAERS Safety Report 25463206 (Version 2)
Quarter: 2025Q2

REPORT INFORMATION
  Report Type: Report from Study
  Country: DE (occurrence: DE)
  Receive Date: 20250620
  Receipt Date: 20250623
  Transmission Date: 20250717
  Serious: Yes (Hospitalization)
  Sender: PFIZER
  Company Number: DE-PFM-2025-02913

PATIENT
  Age: 68 Year
  Sex: Male

DRUGS (10)
  1. ENCORAFENIB [Suspect]
     Active Substance: ENCORAFENIB
     Indication: Malignant melanoma
     Dosage: 450 MG, QD (1/DAY)
     Route: 048
     Dates: start: 20220401, end: 20230312
  2. BINIMETINIB [Suspect]
     Active Substance: BINIMETINIB
     Indication: Malignant melanoma
     Dosage: 45 MG, BID (2/DAY)
     Route: 048
     Dates: start: 20220401, end: 20230312
  3. ASPIRIN [Concomitant]
     Active Substance: ASPIRIN
     Route: 065
  4. HYDROMORPHONE [Concomitant]
     Active Substance: HYDROMORPHONE
     Indication: Prophylaxis
     Route: 065
  5. ELECTROLYTE [CALCIUM GLUCONATE;MAGNESIUM CARBONATE;POTASSIUM CHLORIDE; [Concomitant]
     Indication: Prophylaxis
     Route: 065
  6. LEVOTHYROXINE [Concomitant]
     Active Substance: LEVOTHYROXINE
     Route: 065
  7. POLYETHYLENE GLYCOLS [Concomitant]
     Active Substance: POLYETHYLENE GLYCOLS
     Indication: Prophylaxis
     Route: 065
  8. PANTOPRAZOLE [Concomitant]
     Active Substance: PANTOPRAZOLE
     Indication: Prophylaxis
     Route: 065
  9. SIMVASTATIN [Concomitant]
     Active Substance: SIMVASTATIN
     Indication: Prophylaxis
     Route: 065
  10. HYDROCORTISONE [Concomitant]
     Active Substance: HYDROCORTISONE
     Route: 065
     Dates: start: 20230306, end: 20230307

REACTIONS (1)
  - Adrenal insufficiency [Recovered/Resolved]

NARRATIVE: CASE EVENT DATE: 20230306
